FAERS Safety Report 6316625-2 (Version None)
Quarter: 2009Q3

REPORT INFORMATION
  Report Type: 
  Country: None (occurrence: None)
  Receive Date: 20090820
  Receipt Date: 20090813
  Transmission Date: 20100115
  Serious: Yes (Hospitalization)
  Sender: FDA-Public Use
  Company Number: FR-TEVA-206134USA

PATIENT
  Sex: Female

DRUGS (7)
  1. BISELECT [Suspect]
     Indication: ATRIAL FIBRILLATION
     Dosage: 1 DOSAGE FORM
     Route: 048
     Dates: start: 20090601
  2. NOCTRAN 10 [Suspect]
     Dosage: ONE DOSAGE FORM
     Route: 048
     Dates: start: 20090601
  3. SPIRONOLACTONE [Suspect]
     Indication: CARDIAC FAILURE
     Dosage: 1 DOSAGE FORM
     Route: 048
     Dates: start: 20090601
  4. IRBESARTAN [Suspect]
     Indication: ATRIAL FIBRILLATION
     Dosage: ONE DOSAGE FORM
     Route: 048
     Dates: start: 20090601
  5. FLUINDIONE [Concomitant]
     Indication: ATRIAL FIBRILLATION
  6. OMEPRAZOLE [Concomitant]
     Indication: DUODENAL ULCER
     Route: 048
  7. SIMVASTATIN [Concomitant]
     Indication: DYSLIPIDAEMIA
     Dosage: 1  DOSAGE FORM
     Route: 048

REACTIONS (1)
  - FALL [None]
